FAERS Safety Report 6063471-3 (Version None)
Quarter: 2009Q1

REPORT INFORMATION
  Report Type: 
  Country: None (occurrence: None)
  Receive Date: 20090203
  Receipt Date: 20090128
  Transmission Date: 20090719
  Serious: No
  Sender: FDA-Public Use
  Company Number: US-B.I. PHARMACEUTICALS,INC./RIDGEFIELD-2009-BP-00944BP

PATIENT
  Age: 65 Year
  Sex: Female

DRUGS (1)
  1. MICARDIS [Suspect]
     Dosage: 80MG
     Dates: start: 20081231

REACTIONS (4)
  - CARDIAC FLUTTER [None]
  - DIARRHOEA [None]
  - DIZZINESS [None]
  - PERIPHERAL COLDNESS [None]
